FAERS Safety Report 16167921 (Version 1)
Quarter: 2019Q2

REPORT INFORMATION
  Report Type: Spontaneous
  Country: US (occurrence: US)
  Receive Date: 20190408
  Receipt Date: 20190408
  Transmission Date: 20190711
  Serious: No
  Sender: FDA-Public Use
  Company Number: US-ACLARIS THERAPEUTICS-2019US000671

PATIENT
  Sex: Male

DRUGS (2)
  1. ESKATA [Suspect]
     Active Substance: HYDROGEN PEROXIDE
     Indication: SEBORRHOEIC KERATOSIS
     Dosage: UNK
     Route: 061
     Dates: start: 20180801, end: 20180801
  2. ESKATA [Suspect]
     Active Substance: HYDROGEN PEROXIDE
     Dosage: UNK
     Route: 061
     Dates: start: 20181003, end: 20181003

REACTIONS (2)
  - Drug ineffective [Unknown]
  - Product complaint [Unknown]
